FAERS Safety Report 12198799 (Version 1)
Quarter: 2016Q1

REPORT INFORMATION
  Report Type: Spontaneous
  Country: US (occurrence: US)
  Receive Date: 20160322
  Receipt Date: 20160322
  Transmission Date: 20160526
  Serious: No
  Sender: FDA-Public Use
  Company Number: US-BAYER-2016-047147

PATIENT
  Age: 83 Year
  Sex: Female
  Weight: 63.49 kg

DRUGS (9)
  1. VITAMIN K [Concomitant]
     Active Substance: PHYTONADIONE
  2. LOVASTATIN. [Concomitant]
     Active Substance: LOVASTATIN
  3. METOPROLOL. [Concomitant]
     Active Substance: METOPROLOL
  4. CALCIUM [Concomitant]
     Active Substance: CALCIUM
  5. WARFARIN [Concomitant]
     Active Substance: WARFARIN
  6. ONE-A-DAY [VIT C,B12,D2,B3,B6,RETINOL,B2,B1 MONONITR] [Concomitant]
  7. MIRALAX [Suspect]
     Active Substance: POLYETHYLENE GLYCOL 3350
     Indication: GASTROINTESTINAL DISORDER
     Dosage: 1 DF, QD
     Route: 048
  8. FISH OIL [Concomitant]
     Active Substance: FISH OIL
  9. SCHIFF MOVE FREE [Concomitant]
     Active Substance: CHONDROITIN SULFATE A\GLUCOSAMINE

REACTIONS (1)
  - Product use issue [None]
